FAERS Safety Report 8566198 (Version 4)
Quarter: 2012Q4

REPORT INFORMATION
  Report Type: 
  Country: US (occurrence: US)
  Receive Date: 20120517
  Receipt Date: 20121210
  Transmission Date: 20130627
  Serious: No
  Sender: FDA-Public Use
  Company Number: US-PFIZER INC-2012118171

PATIENT
  Age: 64 Year
  Sex: Male
  Weight: 122 kg

DRUGS (8)
  1. CELEBREX [Suspect]
     Indication: ARTHRITIC PAINS
     Dosage: 200 mg, daily
     Dates: start: 2009, end: 201211
  2. CELEBREX [Suspect]
     Dosage: UNK
  3. VICODIN [Suspect]
     Indication: PAIN IN ELBOW
     Dosage: 750 mg, 4x/day
     Dates: start: 2004
  4. VICODIN [Suspect]
     Indication: PAIN IN SPINE
  5. METFORMIN [Concomitant]
     Indication: TYPE II DIABETES MELLITUS
     Dosage: 1000 mg, 2x/day
  6. LISINOPRIL [Concomitant]
     Indication: BLOOD PRESSURE HIGH
     Dosage: 40 mg, 2x/day
     Dates: start: 1997
  7. FUROSEMIDE [Concomitant]
     Indication: BLOOD PRESSURE HIGH
     Dosage: 40 mg, 3x/day
  8. POTASSIUM CHLORIDE [Concomitant]
     Dosage: UNK
     Dates: start: 1997

REACTIONS (4)
  - Drug ineffective [Unknown]
  - Pain [Unknown]
  - Spinal pain [Not Recovered/Not Resolved]
  - Arthralgia [Not Recovered/Not Resolved]
